FAERS Safety Report 6441623-8 (Version None)
Quarter: 2009Q4

REPORT INFORMATION
  Report Type: 
  Country: None (occurrence: None)
  Receive Date: 20091116
  Receipt Date: 20091104
  Transmission Date: 20100525
  Serious: Yes (Other)
  Sender: FDA-Public Use
  Company Number: GB-AMGEN-UK373221

PATIENT
  Sex: Female
  Weight: 50 kg

DRUGS (2)
  1. ROMIPLOSTIM [Suspect]
     Dates: start: 20070901, end: 20080514
  2. NUTRITIONAL AGENTS AND VITAMINS [Concomitant]
     Route: 048
     Dates: start: 20070801, end: 20080513

REACTIONS (3)
  - BLEEDING PERIPARTUM [None]
  - PALPITATIONS [None]
  - VENTOUSE EXTRACTION [None]
